FAERS Safety Report 23714626 (Version 2)
Quarter: 2024Q2

REPORT INFORMATION
  Report Type: Spontaneous
  Country: MA (occurrence: MA)
  Receive Date: 20240406
  Receipt Date: 20240412
  Transmission Date: 20240716
  Serious: Yes (Death, Life-Threatening, Hospitalization, Other)
  Sender: FDA-Public Use
  Company Number: MA-MLMSERVICE-20240320-4895860-1

PATIENT
  Age: 5 Decade
  Sex: Female

DRUGS (1)
  1. METHOTREXATE [Suspect]
     Active Substance: METHOTREXATE
     Indication: Psoriasis
     Dosage: STRENGTH: 15 MG
     Route: 030

REACTIONS (11)
  - Rectal haemorrhage [Fatal]
  - Septic shock [Fatal]
  - Myelosuppression [Fatal]
  - Inappropriate schedule of product administration [Fatal]
  - Product dispensing error [Fatal]
  - Toxic skin eruption [Fatal]
  - Pneumonitis [Fatal]
  - Product communication issue [Fatal]
  - Accidental overdose [Fatal]
  - Multiple organ dysfunction syndrome [Fatal]
  - Melaena [Fatal]
